FAERS Safety Report 25002128 (Version 1)
Quarter: 2025Q1

REPORT INFORMATION
  Report Type: Spontaneous
  Country: US (occurrence: US)
  Receive Date: 20250224
  Receipt Date: 20250224
  Transmission Date: 20250409
  Serious: Yes (Other)
  Sender: SANOFI AVENTIS
  Company Number: US-SA-2025SA052993

PATIENT
  Age: 70 Year
  Sex: Male

DRUGS (1)
  1. DUPIXENT [Suspect]
     Active Substance: DUPILUMAB
     Indication: Asthma
     Dosage: 300 MG, QOW
     Route: 058
     Dates: start: 201903

REACTIONS (3)
  - Atrial fibrillation [Unknown]
  - Cough [Unknown]
  - Wheezing [Unknown]

NARRATIVE: CASE EVENT DATE: 20250101
